FAERS Safety Report 18124303 (Version 1)
Quarter: 2020Q3

REPORT INFORMATION
  Report Type: Spontaneous
  Country: US (occurrence: US)
  Receive Date: 20200807
  Receipt Date: 20200807
  Transmission Date: 20201103
  Serious: Yes (Hospitalization)
  Sender: FDA-Public Use
  Company Number: US-MYLANLABS-2020M1069880

PATIENT
  Age: 71 Year
  Sex: Male

DRUGS (2)
  1. NIVOLUMAB [Suspect]
     Active Substance: NIVOLUMAB
     Indication: HEPATOCELLULAR CARCINOMA
     Dosage: UNK
     Route: 065
     Dates: start: 2016, end: 201611
  2. PREDNISONE. [Suspect]
     Active Substance: PREDNISONE
     Indication: IMMUNE-MEDIATED HEPATITIS
     Dosage: 1 MILLIGRAM/KILOGRAM, QD
     Route: 048
     Dates: start: 2016

REACTIONS (2)
  - Hyperglycaemia [Unknown]
  - Immune-mediated hepatitis [Recovered/Resolved]

NARRATIVE: CASE EVENT DATE: 2016
